FAERS Safety Report 4528733-7 (Version None)
Quarter: 2004Q4

REPORT INFORMATION
  Report Type: 
  Country: None (occurrence: None)
  Receive Date: 20041216
  Receipt Date: 20041213
  Transmission Date: 20050328
  Serious: Yes (Death)
  Sender: FDA-Public Use
  Company Number: LB-BRISTOL-MYERS SQUIBB COMPANY-12794301

PATIENT
  Age: 80 Year
  Sex: Female
  Weight: 80 kg

DRUGS (7)
  1. COAPROVEL TABS [Suspect]
     Indication: HYPERTENSION
     Route: 048
     Dates: start: 20040401, end: 20040520
  2. ATORVASTATIN [Concomitant]
     Indication: DIABETES MELLITUS
     Route: 048
     Dates: start: 20000101, end: 20040101
  3. METFORMIN HCL [Concomitant]
     Indication: DIABETES MELLITUS
     Route: 048
     Dates: start: 20040101, end: 20040101
  4. ROSIGLITAZONE MALEATE [Concomitant]
     Indication: DIABETES MELLITUS
     Route: 048
     Dates: end: 20040101
  5. PAROXETINE [Concomitant]
     Indication: DIABETES MELLITUS
     Route: 048
     Dates: start: 19950101, end: 20040101
  6. LORAZEPAM [Concomitant]
     Route: 048
     Dates: start: 19850101, end: 20040101
  7. TAMOXIFEN CITRATE [Concomitant]
     Route: 048
     Dates: end: 20040101

REACTIONS (1)
  - SUDDEN DEATH [None]
